FAERS Safety Report 8598625-5 (Version None)
Quarter: 2012Q3

REPORT INFORMATION
  Report Type: 
  Country: None (occurrence: None)
  Receive Date: 20120816
  Receipt Date: 19891204
  Transmission Date: 20120928
  Serious: Yes (Hospitalization)
  Sender: FDA-Public Use
  Company Number: US-ROCHE-1099912

PATIENT
  Age: 60 Year
  Sex: Male

DRUGS (3)
  1. DIGOXIN [Concomitant]
  2. ACTIVASE [Suspect]
     Indication: ACUTE MYOCARDIAL INFARCTION
  3. CARDIZEM [Concomitant]

REACTIONS (3)
  - PLEURITIC PAIN [None]
  - ATRIAL FLUTTER [None]
  - HYPOTENSION [None]
